FAERS Safety Report 18515779 (Version 1)
Quarter: 2020Q4

REPORT INFORMATION
  Report Type: Spontaneous
  Country: US (occurrence: US)
  Receive Date: 20201117
  Receipt Date: 20201117
  Transmission Date: 20210114
  Serious: Yes (Hospitalization)
  Sender: FDA-Public Use
  Company Number: None

PATIENT
  Age: 32 Year
  Sex: Male
  Weight: 72 kg

DRUGS (1)
  1. LEVOFLOXACIN. [Suspect]
     Active Substance: LEVOFLOXACIN
     Indication: EPIDIDYMITIS
     Dosage: ?          QUANTITY:14 TABLET(S);?
     Route: 048

REACTIONS (6)
  - Pain [None]
  - Visual impairment [None]
  - Chest pain [None]
  - Peripheral swelling [None]
  - Abdominal discomfort [None]
  - Tendon discomfort [None]

NARRATIVE: CASE EVENT DATE: 20201005
